FAERS Safety Report 20862853 (Version 1)
Quarter: 2022Q2

REPORT INFORMATION
  Report Type: Spontaneous
  Country: US (occurrence: None)
  Receive Date: 20220523
  Receipt Date: 20220523
  Transmission Date: 20220721
  Serious: Yes (unspecified)
  Sender: FDA-Public Use
  Company Number: None

PATIENT
  Age: 69 Year
  Sex: Male
  Weight: 69 kg

DRUGS (1)
  1. EMPAGLIFLOZIN [Suspect]
     Active Substance: EMPAGLIFLOZIN
     Indication: Diabetes mellitus
     Dosage: FREQUENCY : DAILY;?
     Route: 048
     Dates: start: 20200316, end: 20220120

REACTIONS (6)
  - Nausea [None]
  - Vomiting [None]
  - Hypertension [None]
  - Tachycardia [None]
  - Hyperglycaemia [None]
  - Euglycaemic diabetic ketoacidosis [None]

NARRATIVE: CASE EVENT DATE: 20220120
